FAERS Safety Report 6543663-7 (Version None)
Quarter: 2010Q1

REPORT INFORMATION
  Report Type: 
  Country: None (occurrence: None)
  Receive Date: 20100120
  Receipt Date: 20100112
  Transmission Date: 20100710
  Serious: Yes (Hospitalization)
  Sender: FDA-Public Use
  Company Number: US-B.I. PHARMACEUTICALS,INC./RIDGEFIELD-2009-BP-14424BP

PATIENT
  Age: 29 Year
  Sex: Male
  Weight: 61.69 kg

DRUGS (4)
  1. VIRAMUNE [Suspect]
     Indication: ACQUIRED IMMUNODEFICIENCY SYNDROME
     Dosage: 400 MG
     Dates: start: 20091130, end: 20091214
  2. VIRAMUNE [Suspect]
     Dosage: 400 MG
     Dates: end: 20091130
  3. VIRAMUNE [Suspect]
     Dosage: 200 MG
     Dates: start: 20091005
  4. SEROSTIM [Concomitant]
     Dosage: 6 MG
     Dates: start: 20091118, end: 20091216

REACTIONS (3)
  - RASH [None]
  - SWELLING FACE [None]
  - URTICARIA [None]
